FAERS Safety Report 21150211 (Version 3)
Quarter: 2022Q3

REPORT INFORMATION
  Report Type: Spontaneous
  Country: US (occurrence: US)
  Receive Date: 20220729
  Receipt Date: 20220822
  Transmission Date: 20221027
  Serious: Yes (Hospitalization, Other)
  Sender: FDA-Public Use
  Company Number: US-JNJFOC-20220756595

PATIENT
  Age: 60 Year
  Sex: Female
  Weight: 65.9 kg

DRUGS (2)
  1. UPTRAVI [Suspect]
     Active Substance: SELEXIPAG
     Indication: Pulmonary arterial hypertension
     Dosage: UPTRAVI 1000MCG ORALLY 2 TIMES DAILY
     Route: 048
     Dates: start: 202207
  2. SILDENAFIL CITRATE [Concomitant]
     Active Substance: SILDENAFIL CITRATE

REACTIONS (7)
  - Cerebrovascular accident [Unknown]
  - Ovarian cancer [Unknown]
  - Pulmonary oedema [Unknown]
  - Ascites [Unknown]
  - Pericardial effusion [Unknown]
  - Hypertension [Unknown]
  - Blood cholesterol increased [Unknown]

NARRATIVE: CASE EVENT DATE: 20220701
